FAERS Safety Report 13494893 (Version 2)
Quarter: 2017Q2

REPORT INFORMATION
  Report Type: Spontaneous
  Country: US (occurrence: US)
  Receive Date: 20170428
  Receipt Date: 20170522
  Transmission Date: 20170830
  Serious: No
  Sender: FDA-Public Use
  Company Number: US-PFIZER INC-2017183027

PATIENT
  Age: 68 Year
  Sex: Female

DRUGS (10)
  1. VIOXX [Suspect]
     Active Substance: ROFECOXIB
     Dosage: UNK
  2. BIAXIN [Suspect]
     Active Substance: CLARITHROMYCIN
     Dosage: UNK
  3. TORADOL [Suspect]
     Active Substance: KETOROLAC TROMETHAMINE
     Dosage: UNK
  4. ARAVA [Suspect]
     Active Substance: LEFLUNOMIDE
     Dosage: UNK
  5. METHOTREXATE SODIUM. [Suspect]
     Active Substance: METHOTREXATE SODIUM
     Dosage: UNK
  6. SOLU-MEDROL [Suspect]
     Active Substance: METHYLPREDNISOLONE SODIUM SUCCINATE
     Dosage: UNK
  7. BEXTRA [Suspect]
     Active Substance: VALDECOXIB
     Dosage: UNK
  8. PREDNISONE. [Suspect]
     Active Substance: PREDNISONE
     Dosage: UNK
  9. CELEBREX [Suspect]
     Active Substance: CELECOXIB
     Dosage: UNK
  10. PLAQUENIL [Suspect]
     Active Substance: HYDROXYCHLOROQUINE SULFATE
     Dosage: UNK

REACTIONS (1)
  - Drug hypersensitivity [Not Recovered/Not Resolved]

NARRATIVE: CASE EVENT DATE: 20130424
